FAERS Safety Report 7970413-X (Version None)
Quarter: 2011Q4

REPORT INFORMATION
  Report Type: 
  Country: None (occurrence: None)
  Receive Date: 20111212
  Receipt Date: 20111209
  Transmission Date: 20120403
  Serious: Yes (Death, Disabling)
  Sender: FDA-Public Use
  Company Number: PHHY2011TR71974

PATIENT
  Sex: Male
  Weight: 85 kg

DRUGS (1)
  1. TASIGNA [Suspect]
     Dosage: UNK
     Route: 048
     Dates: start: 20100310, end: 20110403

REACTIONS (4)
  - RENAL FAILURE ACUTE [None]
  - RESPIRATORY FAILURE [None]
  - PNEUMONIA [None]
  - NEPHROTIC SYNDROME [None]
